FAERS Safety Report 8015096-8 (Version None)
Quarter: 2011Q4

REPORT INFORMATION
  Report Type: 
  Country: None (occurrence: None)
  Receive Date: 20111230
  Receipt Date: 20111221
  Transmission Date: 20120403
  Serious: No
  Sender: FDA-Public Use
  Company Number: US-BIOGENIDEC-2011BI048283

PATIENT
  Age: 55 Year
  Sex: Female

DRUGS (2)
  1. DEPRESSION MEDICATION (NOS) [Concomitant]
     Indication: DEPRESSION
     Dates: start: 20050101
  2. TYSABRI [Suspect]
     Indication: MULTIPLE SCLEROSIS
     Route: 042
     Dates: start: 20110901

REACTIONS (1)
  - PERSONALITY CHANGE [None]
